FAERS Safety Report 20208363 (Version 1)
Quarter: 2021Q4

REPORT INFORMATION
  Report Type: Spontaneous
  Country: CN (occurrence: CN)
  Receive Date: 20211220
  Receipt Date: 20211220
  Transmission Date: 20220303
  Serious: Yes (Other)
  Sender: FDA-Public Use
  Company Number: CN-GUERBET-CN-20210347

PATIENT
  Age: 47 Year
  Sex: Female

DRUGS (3)
  1. LIPIODOL [Suspect]
     Active Substance: ETHIODIZED OIL
     Indication: Transcatheter arterial chemoembolisation
     Route: 013
  2. CISPLATIN [Concomitant]
     Active Substance: CISPLATIN
     Indication: Transcatheter arterial chemoembolisation
     Route: 013
  3. MITOTANE [Concomitant]
     Active Substance: MITOTANE
     Indication: Adrenocortical carcinoma
     Route: 065

REACTIONS (2)
  - Adrenal insufficiency [Unknown]
  - Post embolisation syndrome [Unknown]
